FAERS Safety Report 7132181-3 (Version None)
Quarter: 2010Q4

REPORT INFORMATION
  Report Type: 
  Country: None (occurrence: None)
  Receive Date: 20101202
  Receipt Date: 20101124
  Transmission Date: 20110411
  Serious: Yes (Hospitalization)
  Sender: FDA-Public Use
  Company Number: FR-ASTRAZENECA-2010SE56067

PATIENT
  Age: 31191 Day
  Sex: Male

DRUGS (8)
  1. ATACAND [Suspect]
     Indication: HYPERTENSION
     Route: 048
     Dates: start: 20100827, end: 20101029
  2. MULTAQ [Suspect]
     Indication: ATRIAL FIBRILLATION
     Route: 048
     Dates: start: 20101015, end: 20101029
  3. SINTROM [Concomitant]
  4. FUROSEMIDE [Concomitant]
  5. ART 50 [Concomitant]
  6. LYRICA [Concomitant]
  7. RIVOTRIL [Concomitant]
     Dosage: 2.5 MG/ML SIX DROPS EVERY EVENING
  8. ERY-TAB [Concomitant]

REACTIONS (2)
  - AZOTAEMIA [None]
  - BLOOD CREATININE INCREASED [None]
